FAERS Safety Report 8349221-6 (Version None)
Quarter: 2012Q2

REPORT INFORMATION
  Report Type: 
  Country: None (occurrence: None)
  Receive Date: 20120510
  Receipt Date: 20120504
  Transmission Date: 20120825
  Serious: Yes (Other)
  Sender: FDA-Public Use
  Company Number: PHEH2012US008343

PATIENT
  Sex: Female
  Weight: 76.19 kg

DRUGS (5)
  1. TRAMADOL HYDROCHLORIDE [Concomitant]
     Indication: PAIN
     Dosage: 50 UKN, UNK
     Route: 048
  2. SIMVASTATIN [Concomitant]
     Indication: BLOOD CHOLESTEROL
     Dosage: 40 UKN, UNK
     Route: 048
  3. DEPO-PROVERA [Concomitant]
     Indication: CONTRACEPTION
     Route: 030
  4. GILENYA [Suspect]
     Indication: MULTIPLE SCLEROSIS
     Dosage: 0.5 MG, QD
     Route: 048
     Dates: start: 20120328
  5. LEXAPRO [Concomitant]
     Indication: ANXIETY
     Dosage: 10 UKN, UNK
     Route: 048

REACTIONS (5)
  - HOT FLUSH [None]
  - SKIN DISCOLOURATION [None]
  - HYPERHIDROSIS [None]
  - GENERAL PHYSICAL CONDITION ABNORMAL [None]
  - INCOHERENT [None]
